FAERS Safety Report 9787726 (Version 1)
Quarter: 2013Q4

REPORT INFORMATION
  Report Type: Spontaneous
  Country: FR (occurrence: FR)
  Receive Date: 20131230
  Receipt Date: 20131230
  Transmission Date: 20140711
  Serious: Yes (Death, Life-Threatening, Hospitalization)
  Sender: FDA-Public Use
  Company Number: FR-JNJFOC-20131215423

PATIENT
  Age: 76 Year
  Sex: Male

DRUGS (5)
  1. XARELTO [Suspect]
     Indication: PRODUCT USED FOR UNKNOWN INDICATION
     Route: 048
     Dates: start: 201307, end: 20131201
  2. PLAVIX [Suspect]
     Indication: PRODUCT USED FOR UNKNOWN INDICATION
     Route: 048
     Dates: end: 20131201
  3. DETENSIEL [Concomitant]
     Route: 065
  4. INEXIUM [Concomitant]
     Route: 065
  5. KLIPAL [Concomitant]
     Route: 065

REACTIONS (4)
  - Acute coronary syndrome [Fatal]
  - Myocardial infarction [Fatal]
  - Rectal haemorrhage [Fatal]
  - Anaemia [Fatal]
